FAERS Safety Report 22343422 (Version 1)
Quarter: 2023Q2

REPORT INFORMATION
  Report Type: Spontaneous
  Country: US (occurrence: None)
  Receive Date: 20230519
  Receipt Date: 20230519
  Transmission Date: 20230722
  Serious: Yes (Life-Threatening, Hospitalization, Other)
  Sender: FDA-Public Use
  Company Number: US-MICRO LABS LIMITED-ML2023-02698

PATIENT
  Age: 25 Year
  Sex: Female

DRUGS (1)
  1. RANOLAZINE [Suspect]
     Active Substance: RANOLAZINE
     Indication: Product used for unknown indication

REACTIONS (8)
  - Somnolence [Unknown]
  - Hypokalaemia [Unknown]
  - Generalised tonic-clonic seizure [Unknown]
  - Cardiac arrest [Recovered/Resolved]
  - Metabolic acidosis [Unknown]
  - Circulatory collapse [Unknown]
  - Acute respiratory distress syndrome [Unknown]
  - Intentional overdose [Unknown]
